FAERS Safety Report 5965113-1 (Version None)
Quarter: 2008Q4

REPORT INFORMATION
  Report Type: 
  Country: None (occurrence: None)
  Receive Date: 20081125
  Receipt Date: 20081119
  Transmission Date: 20090506
  Serious: Yes (Death, Other)
  Sender: FDA-Public Use
  Company Number: PHHY2008DK29013

PATIENT
  Sex: Female

DRUGS (3)
  1. ZOMETA [Suspect]
     Indication: OSTEOPOROSIS
     Dosage: UNK
     Route: 042
     Dates: start: 20050921
  2. VINORELBINE [Concomitant]
  3. HERCEPTIN [Concomitant]

REACTIONS (7)
  - DEATH [None]
  - GASTROINTESTINAL ULCER [None]
  - IMPAIRED GASTRIC EMPTYING [None]
  - JAW DISORDER [None]
  - OSTEONECROSIS [None]
  - TOOTH EXTRACTION [None]
  - TOOTH LOSS [None]
